FAERS Safety Report 8300395-2 (Version None)
Quarter: 2012Q2

REPORT INFORMATION
  Report Type: 
  Country: None (occurrence: None)
  Receive Date: 20120420
  Receipt Date: 20120417
  Transmission Date: 20120825
  Serious: Yes (Death)
  Sender: FDA-Public Use
  Company Number: US-JNJFOC-20120408070

PATIENT
  Age: 88 Year
  Sex: Female

DRUGS (2)
  1. HYDROCHLOROTHIAZIDE [Concomitant]
     Indication: HYPERTENSION
  2. XARELTO [Suspect]
     Indication: ORTHOPEDIC PROCEDURE
     Route: 048

REACTIONS (1)
  - PULMONARY EMBOLISM [None]
